FAERS Safety Report 4655598-5 (Version None)
Quarter: 2005Q2

REPORT INFORMATION
  Report Type: 
  Country: None (occurrence: None)
  Receive Date: 20050505
  Receipt Date: 20050427
  Transmission Date: 20051028
  Serious: Yes (Death, Hospitalization, Other)
  Sender: FDA-Public Use
  Company Number: 163-20785-05010021

PATIENT
  Age: 72 Year
  Sex: Male
  Weight: 62 kg

DRUGS (11)
  1. THALOMID [Suspect]
     Indication: MULTIPLE MYELOMA
     Dosage: SEE IMAGE
     Route: 048
     Dates: start: 19990628, end: 19991020
  2. THALOMID [Suspect]
     Indication: MULTIPLE MYELOMA
     Dosage: SEE IMAGE
     Route: 048
     Dates: start: 19991129, end: 20000102
  3. THALOMID [Suspect]
     Indication: MULTIPLE MYELOMA
     Dosage: SEE IMAGE
     Route: 048
     Dates: start: 20000131, end: 20000228
  4. THALOMID [Suspect]
     Indication: MULTIPLE MYELOMA
     Dosage: SEE IMAGE
     Route: 048
     Dates: start: 20000321, end: 20000716
  5. THALOMID [Suspect]
     Indication: MULTIPLE MYELOMA
     Dosage: SEE IMAGE
     Route: 048
     Dates: start: 20010106, end: 20010419
  6. THALOMID [Suspect]
     Indication: MULTIPLE MYELOMA
     Dosage: SEE IMAGE
     Route: 048
     Dates: start: 20010523
  7. THALOMID [Suspect]
     Indication: MULTIPLE MYELOMA
     Dosage: SEE IMAGE
     Route: 048
     Dates: start: 20020618
  8. . [Concomitant]
  9. . [Concomitant]
  10. . [Concomitant]
  11. . [Concomitant]

REACTIONS (8)
  - LIP AND/OR ORAL CAVITY CANCER STAGE IV [None]
  - METASTASES TO LYMPH NODES [None]
  - METASTASES TO NERVOUS SYSTEM [None]
  - METASTASES TO SKIN [None]
  - PAROTIDECTOMY [None]
  - PNEUMONIA [None]
  - SKIN ULCER [None]
  - SQUAMOUS CELL CARCINOMA OF SKIN [None]
